FAERS Safety Report 9555370 (Version 2)
Quarter: 2013Q4

REPORT INFORMATION
  Report Type: Spontaneous
  Country: US (occurrence: US)
  Receive Date: 20130926
  Receipt Date: 20131021
  Transmission Date: 20140711
  Serious: No
  Sender: FDA-Public Use
  Company Number: US-009507513-1309USA010897

PATIENT
  Sex: 0

DRUGS (3)
  1. PEGINTRON [Suspect]
     Indication: HEPATITIS C
     Dosage: UNK
  2. REBETOL [Suspect]
     Indication: HEPATITIS C
     Dosage: UNK
  3. TELAPREVIR [Suspect]
     Indication: LIVER TRANSPLANT
     Dosage: UNK

REACTIONS (1)
  - Anaemia [Unknown]
